FAERS Safety Report 12290189 (Version 1)
Quarter: 2016Q2

REPORT INFORMATION
  Report Type: Spontaneous
  Country: US (occurrence: US)
  Receive Date: 20160421
  Receipt Date: 20160421
  Transmission Date: 20160815
  Serious: No
  Sender: FDA-Public Use
  Company Number: US-MISSION PHARMACAL COMPANY-1050818

PATIENT
  Age: 40 Year
  Sex: Male

DRUGS (1)
  1. THIOLA [Suspect]
     Active Substance: TIOPRONIN
     Indication: CYSTINURIA
     Route: 065
     Dates: start: 20160304

REACTIONS (5)
  - Stomatitis [Unknown]
  - Haemorrhoids [Unknown]
  - Sinus operation [Unknown]
  - Skin disorder [Unknown]
  - Oropharyngeal pain [Recovered/Resolved]
